FAERS Safety Report 7900920-7 (Version None)
Quarter: 2011Q4

REPORT INFORMATION
  Report Type: 
  Country: None (occurrence: None)
  Receive Date: 20111108
  Receipt Date: 20111025
  Transmission Date: 20120403
  Serious: Yes (Other)
  Sender: FDA-Public Use
  Company Number: US-ELI_LILLY_AND_COMPANY-US201110006957

PATIENT
  Age: 59 Year
  Sex: Male

DRUGS (5)
  1. SERTRALINE HYDROCHLORIDE [Concomitant]
  2. ZYPREXA [Suspect]
     Indication: BIPOLAR DISORDER
     Dosage: 20 MG, EACH EVENING
  3. BUPROPION HCL [Concomitant]
  4. OXYCODONE HCL [Concomitant]
     Indication: PAIN
  5. HYDROCODONE BITARTRATE [Concomitant]
     Indication: PAIN

REACTIONS (1)
  - LUNG NEOPLASM MALIGNANT [None]
